FAERS Safety Report 24696643 (Version 1)
Quarter: 2024Q4

REPORT INFORMATION
  Report Type: Spontaneous
  Country: BR (occurrence: BR)
  Receive Date: 20241204
  Receipt Date: 20241204
  Transmission Date: 20250115
  Serious: Yes (Other)
  Sender: ROCHE
  Company Number: BR-ROCHE-10000146130

PATIENT
  Age: 78 Year
  Sex: Female

DRUGS (2)
  1. FARICIMAB [Suspect]
     Active Substance: FARICIMAB
     Indication: Antiangiogenic therapy
     Route: 065
  2. FARICIMAB [Suspect]
     Active Substance: FARICIMAB
     Route: 065

REACTIONS (1)
  - Ill-defined disorder [Unknown]
